FAERS Safety Report 5503214-2 (Version None)
Quarter: 2007Q4

REPORT INFORMATION
  Report Type: 
  Country: None (occurrence: None)
  Receive Date: 20071031
  Receipt Date: 20070917
  Transmission Date: 20080405
  Serious: Yes (Hospitalization, Other)
  Sender: FDA-Public Use
  Company Number: JP-PFIZER INC-2007088437

PATIENT
  Age: 58 Year
  Sex: Female

DRUGS (2)
  1. CORTRIL (TABS) [Suspect]
     Route: 048
  2. ANTIFLATULENTS [Concomitant]

REACTIONS (5)
  - BACK PAIN [None]
  - DYSPHORIA [None]
  - FALL [None]
  - MESENTERIC ARTERY THROMBOSIS [None]
  - OVARIAN NEOPLASM [None]
